FAERS Safety Report 4392781-0 (Version None)
Quarter: 2004Q3

REPORT INFORMATION
  Report Type: 
  Country: None (occurrence: None)
  Receive Date: 20040702
  Receipt Date: 20040315
  Transmission Date: 20050211
  Serious: Yes (Other)
  Sender: FDA-Public Use
  Company Number: 2004UW04897

PATIENT
  Age: 65 Year
  Sex: Female
  Weight: 71.2147 kg

DRUGS (4)
  1. CRESTOR [Suspect]
     Indication: HYPERCHOLESTEROLAEMIA
     Dosage: 10 MG 1/2 TAB QD PO
     Route: 048
  2. ATENOLOL [Concomitant]
  3. PLAVIX [Concomitant]
  4. ECOTRIN [Concomitant]

REACTIONS (1)
  - KERATOCONJUNCTIVITIS SICCA [None]
